FAERS Safety Report 5309780-4 (Version None)
Quarter: 2007Q2

REPORT INFORMATION
  Report Type: 
  Country: None (occurrence: None)
  Receive Date: 20070427
  Receipt Date: 20060406
  Transmission Date: 20071010
  Serious: No
  Sender: FDA-Public Use
  Company Number: 5966

PATIENT
  Age: 70 Year
  Sex: Female
  Weight: 62.3 kg

DRUGS (2)
  1. ZOFRAN [Suspect]
     Indication: NAUSEA
     Dosage: 32MG UNKNOWN
     Route: 042
     Dates: start: 20060406, end: 20060406
  2. DEXAMETHASONE 0.5MG TAB [Concomitant]

REACTIONS (3)
  - INFUSION SITE ERYTHEMA [None]
  - INFUSION SITE PRURITUS [None]
  - PHARMACEUTICAL PRODUCT COMPLAINT [None]
